FAERS Safety Report 7589279-5 (Version None)
Quarter: 2011Q3

REPORT INFORMATION
  Report Type: 
  Country: None (occurrence: None)
  Receive Date: 20110705
  Receipt Date: 20110627
  Transmission Date: 20111222
  Serious: Yes (Other)
  Sender: FDA-Public Use
  Company Number: US-BAYER-2011-055914

PATIENT
  Sex: Female

DRUGS (2)
  1. YAZ [Suspect]
     Indication: PRODUCT USED FOR UNKNOWN INDICATION
  2. YASMIN [Suspect]
     Indication: PRODUCT USED FOR UNKNOWN INDICATION
     Dosage: UNK
     Dates: start: 20031001, end: 20040701

REACTIONS (8)
  - EMOTIONAL DISTRESS [None]
  - INJURY [None]
  - CHEST PAIN [None]
  - ANXIETY [None]
  - PULMONARY EMBOLISM [None]
  - DYSPNOEA [None]
  - PAIN [None]
  - GENERAL PHYSICAL HEALTH DETERIORATION [None]
